FAERS Safety Report 5035818-8 (Version None)
Quarter: 2006Q2

REPORT INFORMATION
  Report Type: 
  Country: None (occurrence: None)
  Receive Date: 20060526
  Receipt Date: 20060308
  Transmission Date: 20061013
  Serious: No
  Sender: FDA-Public Use
  Company Number: FABR-11332

PATIENT
  Age: 41 Year
  Sex: Male
  Weight: 74.8435 kg

DRUGS (10)
  1. FABRAZYME [Suspect]
     Indication: FABRY'S DISEASE
     Dosage: 70 MG Q2WKS IV
     Route: 042
     Dates: start: 20011026
  2. BENADRYL [Concomitant]
  3. ACETAMINOPHEN [Concomitant]
  4. PROCARDIA XL [Concomitant]
  5. FUROSEMIDE [Concomitant]
  6. CLONIDINE [Concomitant]
  7. VALCYTE [Concomitant]
  8. PROGRAF [Concomitant]
  9. LIPITOR [Concomitant]
  10. ASPIRIN [Concomitant]

REACTIONS (4)
  - CHILLS [None]
  - FEELING COLD [None]
  - MYALGIA [None]
  - NASOPHARYNGITIS [None]
